FAERS Safety Report 14511820 (Version 1)
Quarter: 2018Q1

REPORT INFORMATION
  Report Type: Spontaneous
  Country: US (occurrence: US)
  Receive Date: 20180209
  Receipt Date: 20180209
  Transmission Date: 20180509
  Serious: Yes (Hospitalization, Other)
  Sender: FDA-Public Use
  Company Number: US-INDIVIOR LIMITED-INDV-108836-2018

PATIENT
  Age: 63 Year
  Sex: Male

DRUGS (5)
  1. SUBOXONE [Suspect]
     Active Substance: BUPRENORPHINE HYDROCHLORIDE\NALOXONE HYDROCHLORIDE
     Indication: PAIN
     Dosage: 8 MG, ONE, ONE AND HALF AND UPTO TWO FILMS DAILY
     Route: 060
     Dates: end: 201711
  2. OXYCODONE [Suspect]
     Active Substance: OXYCODONE
     Indication: PROCEDURAL PAIN
     Dosage: UNK
     Route: 065
     Dates: start: 201711
  3. SUBOXONE [Suspect]
     Active Substance: BUPRENORPHINE HYDROCHLORIDE\NALOXONE HYDROCHLORIDE
     Indication: DRUG DEPENDENCE
     Dosage: 8 MG, ROLL THE FILMS UP INTO A BALL AND SWALLOW
     Route: 048
     Dates: start: 2016
  4. OXYCODONE [Suspect]
     Active Substance: OXYCODONE
     Indication: DRUG WITHDRAWAL SYNDROME
  5. OXYCODONE [Suspect]
     Active Substance: OXYCODONE
     Indication: PROPHYLAXIS

REACTIONS (8)
  - Procedural pain [Unknown]
  - Hip fracture [Unknown]
  - Intentional product use issue [Recovered/Resolved]
  - Product preparation error [Recovered/Resolved]
  - Discomfort [Recovering/Resolving]
  - Feeling abnormal [Recovering/Resolving]
  - Drug withdrawal syndrome [Recovering/Resolving]
  - Wrong technique in product usage process [Recovered/Resolved]

NARRATIVE: CASE EVENT DATE: 201711
